FAERS Safety Report 18396297 (Version 6)
Quarter: 2021Q2

REPORT INFORMATION
  Report Type: Other
  Country: US (occurrence: US)
  Receive Date: 20201019
  Receipt Date: 20210403
  Transmission Date: 20210717
  Serious: Yes (Other)
  Sender: FDA-Public Use
  Company Number: US-ROCHE-2579723

PATIENT
  Sex: Female
  Weight: 88.98 kg

DRUGS (6)
  1. ACTEMRA [Suspect]
     Active Substance: TOCILIZUMAB
     Indication: IRIDOCYCLITIS
  2. METHYLPREDNISOLONE ACETATE. [Concomitant]
     Active Substance: METHYLPREDNISOLONE ACETATE
     Dosage: INJECT 1.5 ML (60 MG TOTAL)
     Dates: start: 20191017
  3. ACTEMRA [Suspect]
     Active Substance: TOCILIZUMAB
     Indication: OSTEOARTHRITIS
  4. LIDOCAINE. [Concomitant]
     Active Substance: LIDOCAINE
     Dates: start: 20191017
  5. METHYLPREDNISOLONE ACETATE. [Concomitant]
     Active Substance: METHYLPREDNISOLONE ACETATE
     Dosage: INJECT 2 ML (80 MG TOTAL)
     Dates: start: 20160211
  6. ACTEMRA [Suspect]
     Active Substance: TOCILIZUMAB
     Indication: PSORIATIC ARTHROPATHY
     Route: 058
     Dates: start: 20191017

REACTIONS (11)
  - Pruritus [Unknown]
  - Muscular weakness [Unknown]
  - Muscle spasms [Recovering/Resolving]
  - Off label use [Unknown]
  - Immunodeficiency [Unknown]
  - Swelling [Unknown]
  - Back pain [Unknown]
  - Erythema [Unknown]
  - Nerve compression [Unknown]
  - Fall [Unknown]
  - Vogt-Koyanagi-Harada disease [Unknown]
